FAERS Safety Report 15297678 (Version 1)
Quarter: 2018Q3

REPORT INFORMATION
  Report Type: Spontaneous
  Country: ID (occurrence: ID)
  Receive Date: 20180820
  Receipt Date: 20180820
  Transmission Date: 20181010
  Serious: Yes (Hospitalization, Other)
  Sender: FDA-Public Use
  Company Number: ID-PFM-2018-09418

PATIENT

DRUGS (2)
  1. NAVELBINE [Suspect]
     Active Substance: VINORELBINE TARTRATE
     Indication: NON-SMALL CELL LUNG CANCER
     Dosage: 50 ML
     Route: 042
     Dates: start: 20180609, end: 20180809
  2. CISPLATIN. [Concomitant]
     Active Substance: CISPLATIN
     Indication: NON-SMALL CELL LUNG CANCER
     Dosage: 50 ML
     Route: 042
     Dates: start: 20180609, end: 20180809

REACTIONS (5)
  - Administration site swelling [Unknown]
  - Wound [Unknown]
  - Injection site phlebitis [Unknown]
  - Injection site pain [Unknown]
  - Extravasation [Unknown]
